FAERS Safety Report 5431014-0 (Version None)
Quarter: 2007Q3

REPORT INFORMATION
  Report Type: 
  Country: None (occurrence: None)
  Receive Date: 20070828
  Receipt Date: 20070817
  Transmission Date: 20080115
  Serious: Yes (Hospitalization)
  Sender: FDA-Public Use
  Company Number: 060002M07CHE

PATIENT
  Age: 35 Year
  Sex: Female

DRUGS (1)
  1. SEROPHENE [Suspect]
     Dosage: ORAL
     Route: 048
     Dates: start: 20040101, end: 20070701

REACTIONS (6)
  - ABDOMINAL PAIN [None]
  - DRUG TOXICITY [None]
  - GASTROINTESTINAL HYPERMOTILITY [None]
  - HEPATOSPLENOMEGALY [None]
  - LYMPHADENITIS [None]
  - TRANSAMINASES INCREASED [None]
